FAERS Safety Report 10208988 (Version 1)
Quarter: 2014Q2

REPORT INFORMATION
  Report Type: Spontaneous
  Country: TR (occurrence: TR)
  Receive Date: 20140530
  Receipt Date: 20140530
  Transmission Date: 20141212
  Serious: Yes (Other)
  Sender: FDA-Public Use
  Company Number: TR-B.I. PHARMACEUTICALS,INC./RIDGEFIELD-2014-BI-23461TK

PATIENT
  Age: 44 Year
  Sex: Male

DRUGS (4)
  1. PEXOLA [Suspect]
     Indication: PARKINSON^S DISEASE
     Dosage: 4.5 MG
     Route: 048
     Dates: start: 20140429, end: 20140513
  2. CIPRALEX [Concomitant]
     Dosage: 20 MG
     Route: 048
  3. AZILECT [Concomitant]
     Indication: PARKINSON^S DISEASE
     Dosage: 1 MG
     Route: 048
  4. PK-MERZ [Concomitant]
     Indication: PARKINSON^S DISEASE
     Route: 048

REACTIONS (1)
  - Drug effect decreased [Unknown]
